FAERS Safety Report 4751558-4 (Version None)
Quarter: 2005Q3

REPORT INFORMATION
  Report Type: 
  Country: None (occurrence: None)
  Receive Date: 20050824
  Receipt Date: 20050819
  Transmission Date: 20060218
  Serious: Yes (Hospitalization)
  Sender: FDA-Public Use
  Company Number: US-GLAXOSMITHKLINE-A0571076A

PATIENT
  Age: 36 Year
  Sex: Female

DRUGS (2)
  1. AUGMENTIN '125' [Suspect]
     Indication: SINUSITIS
     Dosage: 1000MG PER DAY
     Route: 048
     Dates: start: 20050506, end: 20050509
  2. NO CONCURRENT MEDICATION [Concomitant]

REACTIONS (9)
  - ASTHENIA [None]
  - CANDIDIASIS [None]
  - DIARRHOEA [None]
  - DYSPEPSIA [None]
  - DYSPNOEA [None]
  - FATIGUE [None]
  - NAUSEA [None]
  - URTICARIA [None]
  - WHITE BLOOD CELL COUNT DECREASED [None]
